FAERS Safety Report 13606035 (Version 1)
Quarter: 2017Q2

REPORT INFORMATION
  Report Type: Spontaneous
  Country: US (occurrence: US)
  Receive Date: 20170602
  Receipt Date: 20170602
  Transmission Date: 20170830
  Serious: Yes (Hospitalization)
  Sender: FDA-Public Use
  Company Number: None

PATIENT
  Age: 78 Year
  Sex: Male

DRUGS (1)
  1. BACLOFEN. [Suspect]
     Active Substance: BACLOFEN
     Indication: MUSCLE RELAXANT THERAPY
     Route: 048
     Dates: start: 20170420, end: 20170423

REACTIONS (8)
  - Confusional state [None]
  - Disorientation [None]
  - Restlessness [None]
  - Dialysis [None]
  - Delirium [None]
  - Encephalopathy [None]
  - Neurotoxicity [None]
  - Mental status changes [None]

NARRATIVE: CASE EVENT DATE: 20170423
